FAERS Safety Report 9321718 (Version 2)
Quarter: 2013Q2

REPORT INFORMATION
  Report Type: Spontaneous
  Country: ES (occurrence: ES)
  Receive Date: 20130531
  Receipt Date: 20130626
  Transmission Date: 20140414
  Serious: Yes (Hospitalization)
  Sender: FDA-Public Use
  Company Number: ES-JNJFOC-20130516697

PATIENT
  Age: 63 Year
  Sex: Male

DRUGS (6)
  1. IBUPROFEN [Suspect]
     Indication: PRODUCT USED FOR UNKNOWN INDICATION
     Route: 048
     Dates: end: 20100110
  2. CARDURAN NEO [Interacting]
     Indication: HYPERTENSION
     Route: 048
     Dates: start: 20080904, end: 20100110
  3. ADALAT OROS [Interacting]
     Indication: HYPERTENSION
     Route: 048
     Dates: start: 20090420, end: 20100110
  4. FORTZAAR [Interacting]
     Indication: HYPERTENSION
     Route: 048
     Dates: start: 20080904, end: 20100110
  5. ACETAMINOPHEN [Concomitant]
     Route: 048
     Dates: start: 20100107, end: 20100110
  6. CLOPERASTINE HYDROCHLORIDE [Concomitant]
     Indication: COUGH
     Route: 048
     Dates: start: 20100107, end: 20100110

REACTIONS (2)
  - Renal failure acute [Recovered/Resolved]
  - Drug interaction [Recovered/Resolved]
